FAERS Safety Report 17091215 (Version 1)
Quarter: 2019Q4

REPORT INFORMATION
  Report Type: Spontaneous
  Country: US (occurrence: US)
  Receive Date: 20191126
  Receipt Date: 20191126
  Transmission Date: 20200122
  Serious: Yes (Other)
  Sender: FDA-Public Use
  Company Number: None

PATIENT
  Age: 35 Year
  Weight: 78.75 kg

DRUGS (1)
  1. CALCIUM ACETATE 667MG TABLET [Suspect]
     Active Substance: CALCIUM ACETATE
     Indication: HYPERPHOSPHATAEMIA
     Route: 048

REACTIONS (2)
  - Product label on wrong product [None]
  - Product use complaint [None]

NARRATIVE: CASE EVENT DATE: 20191125
